FAERS Safety Report 21508384 (Version 1)
Quarter: 2022Q4

REPORT INFORMATION
  Report Type: Spontaneous
  Country: US (occurrence: None)
  Receive Date: 20221025
  Receipt Date: 20221025
  Transmission Date: 20230113
  Serious: Yes (Other)
  Sender: FDA-Public Use
  Company Number: None

PATIENT
  Sex: Female

DRUGS (1)
  1. REPATHA [Suspect]
     Active Substance: EVOLOCUMAB
     Indication: Gallbladder disorder
     Dosage: 140 MG/ML SUBCUTANEOUS?INJECT 1 PEN UNDER THE SKIN (SUBCUTANEOUS INJECTION) EVERY 14 (FOURTEEN) DAYS
     Route: 058
     Dates: start: 20190723

REACTIONS (1)
  - Gallbladder cancer [None]
